FAERS Safety Report 5782847-2 (Version None)
Quarter: 2008Q2

REPORT INFORMATION
  Report Type: 
  Country: None (occurrence: None)
  Receive Date: 20080619
  Receipt Date: 20080619
  Transmission Date: 20081010
  Serious: No
  Sender: FDA-Public Use
  Company Number: None

PATIENT
  Age: 59 Year
  Sex: Female
  Weight: 81.6475 kg

DRUGS (1)
  1. PYRIDOSTIGMINE BROMIDE [Suspect]
     Indication: MYASTHENIA GRAVIS
     Dosage: 1 1/2 TABLETS EVERY 2 1/2 HOUR 047
     Dates: start: 20080514, end: 20080604

REACTIONS (1)
  - PHARMACEUTICAL PRODUCT COMPLAINT [None]
